FAERS Safety Report 4987126-9 (Version None)
Quarter: 2006Q2

REPORT INFORMATION
  Report Type: 
  Country: None (occurrence: None)
  Receive Date: 20060501
  Receipt Date: 20060412
  Transmission Date: 20061013
  Serious: Yes (Other)
  Sender: FDA-Public Use
  Company Number: GB-GLAXOSMITHKLINE-B0420246A

PATIENT
  Age: 57 Year
  Sex: Female

DRUGS (2)
  1. NIQUITIN CQ CLEAR 14MG [Suspect]
     Dosage: 14MG PER DAY
     Route: 062
  2. EVENING PRIMROSE OIL [Concomitant]

REACTIONS (5)
  - DIARRHOEA [None]
  - DIZZINESS [None]
  - LOSS OF CONSCIOUSNESS [None]
  - MALAISE [None]
  - VERTIGO [None]
